FAERS Safety Report 12461546 (Version 3)
Quarter: 2016Q3

REPORT INFORMATION
  Report Type: Spontaneous
  Country: DE (occurrence: DE)
  Receive Date: 20160613
  Receipt Date: 20160726
  Transmission Date: 20161109
  Serious: Yes (Other)
  Sender: FDA-Public Use
  Company Number: PHHY2016DE080394

PATIENT
  Sex: Female

DRUGS (1)
  1. ZYKADIA [Suspect]
     Active Substance: CERITINIB
     Indication: PRODUCT USED FOR UNKNOWN INDICATION
     Dosage: 150 MG, UNK
     Route: 065

REACTIONS (8)
  - Metastases to liver [Unknown]
  - Lymphadenopathy [Recovering/Resolving]
  - Diarrhoea [Unknown]
  - Dysphagia [Unknown]
  - Food intolerance [Unknown]
  - Retching [Unknown]
  - Nausea [Unknown]
  - Product physical issue [Unknown]
